FAERS Safety Report 25164780 (Version 2)
Quarter: 2025Q2

REPORT INFORMATION
  Report Type: Spontaneous
  Country: US (occurrence: US)
  Receive Date: 20250406
  Receipt Date: 20250526
  Transmission Date: 20250716
  Serious: No
  Sender: CSL BEHRING
  Company Number: US-BEH-2025200425

PATIENT
  Sex: Female

DRUGS (3)
  1. HIZENTRA [Suspect]
     Active Substance: HUMAN IMMUNOGLOBULIN G
     Indication: Immunoglobulins
     Dosage: 10 G, QMT
     Route: 058
     Dates: start: 202102
  2. HIZENTRA [Suspect]
     Active Substance: HUMAN IMMUNOGLOBULIN G
     Indication: Hypogammaglobulinaemia
  3. DUPIXENT [Concomitant]
     Active Substance: DUPILUMAB

REACTIONS (9)
  - Blood albumin abnormal [Unknown]
  - Blood creatine abnormal [Unknown]
  - Asthma [Unknown]
  - Cystitis [Unknown]
  - Urinary tract infection [Unknown]
  - Blood urine present [Unknown]
  - Chest discomfort [Unknown]
  - Dyspnoea [Unknown]
  - Therapy interrupted [Unknown]

NARRATIVE: CASE EVENT DATE: 20250101
